FAERS Safety Report 10043625 (Version 1)
Quarter: 2014Q1

REPORT INFORMATION
  Report Type: Spontaneous
  Country: US (occurrence: US)
  Receive Date: 20140328
  Receipt Date: 20140328
  Transmission Date: 20141002
  Serious: No
  Sender: FDA-Public Use
  Company Number: US-009507513-1403USA011174

PATIENT
  Age: 19 Year
  Sex: Female
  Weight: 86.17 kg

DRUGS (2)
  1. NEXPLANON [Suspect]
     Dosage: THE ROD
     Route: 059
     Dates: start: 20140227, end: 20140321
  2. NEXPLANON [Suspect]
     Dosage: A NEW NEXPLANON
     Dates: start: 20140321

REACTIONS (2)
  - Device breakage [Recovered/Resolved]
  - No adverse event [Unknown]
